FAERS Safety Report 5949701-4 (Version None)
Quarter: 2008Q4

REPORT INFORMATION
  Report Type: 
  Country: None (occurrence: None)
  Receive Date: 20081112
  Receipt Date: 20081104
  Transmission Date: 20090506
  Serious: Yes (Other)
  Sender: FDA-Public Use
  Company Number: US-BAYER-200837650NA

PATIENT
  Age: 33 Year
  Sex: Male

DRUGS (2)
  1. MAGNEVIST [Suspect]
     Indication: NUCLEAR MAGNETIC RESONANCE IMAGING
  2. OMNISCAN [Suspect]
     Indication: NUCLEAR MAGNETIC RESONANCE IMAGING

REACTIONS (14)
  - ANHEDONIA [None]
  - ANXIETY [None]
  - BALANCE DISORDER [None]
  - DRY SKIN [None]
  - DYSSTASIA [None]
  - GAIT DISTURBANCE [None]
  - NEPHROGENIC SYSTEMIC FIBROSIS [None]
  - PAIN [None]
  - PRURITUS GENERALISED [None]
  - SCAR [None]
  - SKIN EXFOLIATION [None]
  - SKIN HYPERTROPHY [None]
  - SKIN TIGHTNESS [None]
  - SWELLING [None]
